FAERS Safety Report 11038353 (Version 1)
Quarter: 2015Q2

REPORT INFORMATION
  Report Type: Spontaneous
  Country: US (occurrence: US)
  Receive Date: 20150416
  Receipt Date: 20150416
  Transmission Date: 20150821
  Serious: No
  Sender: FDA-Public Use
  Company Number: US-BAYER-2015-117741

PATIENT
  Age: 32 Year
  Sex: Female

DRUGS (1)
  1. GADAVIST [Suspect]
     Active Substance: GADOBUTROL
     Indication: NUCLEAR MAGNETIC RESONANCE IMAGING BRAIN
     Dosage: 7.5 ML, ONCE
     Dates: start: 20150407, end: 20150407

REACTIONS (5)
  - Pharyngeal oedema [Unknown]
  - Vomiting [Unknown]
  - Dyspnoea [Unknown]
  - Urticaria [Unknown]
  - Malaise [Unknown]

NARRATIVE: CASE EVENT DATE: 20150407
